FAERS Safety Report 9584528 (Version 1)
Quarter: 2013Q4

REPORT INFORMATION
  Report Type: Spontaneous
  Country: US (occurrence: US)
  Receive Date: 20131002
  Receipt Date: 20131002
  Transmission Date: 20140711
  Serious: No
  Sender: FDA-Public Use
  Company Number: US-AMGEN-USASP2013054295

PATIENT
  Age: 58 Year
  Sex: Female
  Weight: 62.59 kg

DRUGS (15)
  1. ENBREL [Suspect]
     Indication: PSORIATIC ARTHROPATHY
     Dosage: 50 MG, QWK
     Route: 058
     Dates: start: 20040430, end: 20130615
  2. AMLODIPINE [Concomitant]
     Dosage: UNK
  3. ASPIRIN [Concomitant]
     Dosage: UNK
  4. FOLIC ACID [Concomitant]
     Dosage: UNK
  5. LEUCOVORIN                         /00566701/ [Concomitant]
     Dosage: UNK
  6. LEVOTHYROXINE [Concomitant]
     Dosage: UNK
  7. LOSARTAN [Concomitant]
     Dosage: UNK
  8. METFORMIN [Concomitant]
     Dosage: UNK
  9. METHOTREXATE [Concomitant]
     Dosage: UNK
  10. METOPROLOL [Concomitant]
     Dosage: UNK
  11. OMEPRAZOLE [Concomitant]
     Dosage: UNK
  12. PRAVASTATIN [Concomitant]
     Dosage: UNK
  13. SPIRONOLACTONE [Concomitant]
     Dosage: UNK
  14. TORSEMIDE [Concomitant]
     Dosage: UNK
  15. VITAMIN B12                        /00056201/ [Concomitant]
     Dosage: UNK

REACTIONS (3)
  - Tooth extraction [Not Recovered/Not Resolved]
  - Therapeutic response decreased [Not Recovered/Not Resolved]
  - Sinusitis [Not Recovered/Not Resolved]
